FAERS Safety Report 17838165 (Version 1)
Quarter: 2020Q2

REPORT INFORMATION
  Report Type: Spontaneous
  Country: CA (occurrence: CA)
  Receive Date: 20200528
  Receipt Date: 20200528
  Transmission Date: 20200714
  Serious: Yes (Other)
  Sender: FDA-Public Use
  Company Number: CA-TEVA-2020-CA-1240578

PATIENT
  Age: 41 Year
  Sex: Female

DRUGS (20)
  1. METHOTREXATE. [Suspect]
     Active Substance: METHOTREXATE
     Indication: PRODUCT USED FOR UNKNOWN INDICATION
     Route: 065
  2. ALEVE [Concomitant]
     Active Substance: NAPROXEN SODIUM
  3. CELEBREX [Concomitant]
     Active Substance: CELECOXIB
  4. CIMZIA [Concomitant]
     Active Substance: CERTOLIZUMAB PEGOL
  5. SULFASALAZINE. [Concomitant]
     Active Substance: SULFASALAZINE
  6. VOLTAREN [Suspect]
     Active Substance: DICLOFENAC SODIUM
     Indication: PRODUCT USED FOR UNKNOWN INDICATION
     Route: 065
  7. COVERSYL [PERINDOPRIL ARGININE] [Concomitant]
     Active Substance: PERINDOPRIL ARGININE
  8. ENBREL [Concomitant]
     Active Substance: ETANERCEPT
  9. IBUPROFEN. [Concomitant]
     Active Substance: IBUPROFEN
  10. NAPROXEN. [Concomitant]
     Active Substance: NAPROXEN
  11. REMICADE [Concomitant]
     Active Substance: INFLIXIMAB
  12. SALAZOPYRIN [Concomitant]
     Active Substance: SULFASALAZINE
  13. SIMPONI [Concomitant]
     Active Substance: GOLIMUMAB
  14. HUMIRA [Concomitant]
     Active Substance: ADALIMUMAB
  15. ALLOPURINOL. [Concomitant]
     Active Substance: ALLOPURINOL
  16. FENTANYL. [Suspect]
     Active Substance: FENTANYL
     Indication: PRODUCT USED FOR UNKNOWN INDICATION
     Route: 065
  17. COSENTYX [Suspect]
     Active Substance: SECUKINUMAB
     Indication: ANKYLOSING SPONDYLITIS
     Route: 058
  18. DESOXIMETASONE. [Concomitant]
     Active Substance: DESOXIMETASONE
  19. GEMFIBROZIL. [Concomitant]
     Active Substance: GEMFIBROZIL
  20. INDOMETACIN [Suspect]
     Active Substance: INDOMETHACIN
     Indication: PRODUCT USED FOR UNKNOWN INDICATION
     Route: 065

REACTIONS (9)
  - Headache [Not Recovered/Not Resolved]
  - Inflammation [Not Recovered/Not Resolved]
  - Neuralgia [Not Recovered/Not Resolved]
  - Bone density decreased [Not Recovered/Not Resolved]
  - Bursitis [Not Recovered/Not Resolved]
  - Drug ineffective [Not Recovered/Not Resolved]
  - Gait disturbance [Not Recovered/Not Resolved]
  - Feeling hot [Not Recovered/Not Resolved]
  - Tendonitis [Not Recovered/Not Resolved]
